FAERS Safety Report 14741670 (Version 1)
Quarter: 2018Q2

REPORT INFORMATION
  Report Type: Spontaneous
  Country: US (occurrence: US)
  Receive Date: 20180404
  Receipt Date: 20180404
  Transmission Date: 20180711
  Serious: Yes (Other)
  Sender: FDA-Public Use
  Company Number: None

PATIENT
  Age: 60 Year
  Sex: Female

DRUGS (13)
  1. FLONASE ALGY [Concomitant]
     Dates: start: 20180404
  2. VITAMIN B12 [Concomitant]
     Active Substance: CYANOCOBALAMIN
     Dates: start: 20180404
  3. ALBUTEROL. [Concomitant]
     Active Substance: ALBUTEROL
  4. SYNTHROID [Concomitant]
     Active Substance: LEVOTHYROXINE SODIUM
     Dates: start: 20060203
  5. FERROUS SULF TAB [Concomitant]
     Dates: start: 20180404
  6. ENBREL [Suspect]
     Active Substance: ETANERCEPT
     Indication: RHEUMATOID ARTHRITIS
     Dosage: ?          OTHER FREQUENCY:ONCE A WEEK;?
     Route: 058
     Dates: start: 20060310
  7. CHOLESTYRAM [Concomitant]
     Active Substance: CHOLESTYRAMINE
     Dates: start: 20180404
  8. FOLIC ACID. [Concomitant]
     Active Substance: FOLIC ACID
     Dates: start: 20060203
  9. MUCINEX [Concomitant]
     Active Substance: GUAIFENESIN
     Dates: start: 20180404
  10. PROTONIX [Concomitant]
     Active Substance: PANTOPRAZOLE SODIUM
     Dates: start: 20180404
  11. VITAMIN D3 [Concomitant]
     Active Substance: CHOLECALCIFEROL
     Dates: start: 20180404
  12. LEXAPRO [Concomitant]
     Active Substance: ESCITALOPRAM OXALATE
     Dates: start: 20180404
  13. RANITIDINE. [Concomitant]
     Active Substance: RANITIDINE
     Dates: start: 20180404

REACTIONS (1)
  - Gastritis [None]
